FAERS Safety Report 7572697-9 (Version None)
Quarter: 2011Q3

REPORT INFORMATION
  Report Type: 
  Country: None (occurrence: None)
  Receive Date: 20110620
  Receipt Date: 20110603
  Transmission Date: 20111222
  Serious: Yes (Death, Hospitalization, Other)
  Sender: FDA-Public Use
  Company Number: 2011MA006739

PATIENT
  Age: 53 Year
  Sex: Male

DRUGS (4)
  1. RIFAMPIN [Suspect]
     Indication: TUBERCULOSIS
     Dates: start: 20060520
  2. ISONIAZID [Concomitant]
  3. PYRAZINAMIDE [Concomitant]
  4. COTRIM [Concomitant]

REACTIONS (6)
  - GENERAL PHYSICAL HEALTH DETERIORATION [None]
  - ORAL CANDIDIASIS [None]
  - NORMOCHROMIC NORMOCYTIC ANAEMIA [None]
  - CIRCULATORY COLLAPSE [None]
  - TOXIC EPIDERMAL NECROLYSIS [None]
  - ASTHENIA [None]
